FAERS Safety Report 18133252 (Version 2)
Quarter: 2021Q1

REPORT INFORMATION
  Report Type: Spontaneous
  Country: US (occurrence: US)
  Receive Date: 20200811
  Receipt Date: 20210125
  Transmission Date: 20210419
  Serious: No
  Sender: FDA-Public Use
  Company Number: US-HTU-2020US020373

PATIENT
  Age: 78 Year
  Sex: Male

DRUGS (1)
  1. MECHLORETHAMINE [Suspect]
     Active Substance: MECHLORETHAMINE
     Indication: CUTANEOUS T-CELL LYMPHOMA STAGE I
     Dosage: UNK, 3/WEEK
     Route: 061

REACTIONS (3)
  - Lymphomatoid papulosis [Recovered/Resolved]
  - Off label use [Unknown]
  - Dermatitis [Recovered/Resolved]
